FAERS Safety Report 18191639 (Version 2)
Quarter: 2020Q4

REPORT INFORMATION
  Report Type: Spontaneous
  Country: ES (occurrence: ES)
  Receive Date: 20200825
  Receipt Date: 20201014
  Transmission Date: 20210113
  Serious: Yes (Other)
  Sender: FDA-Public Use
  Company Number: ES-PFIZER INC-2020323630

PATIENT
  Age: 9 Year
  Sex: Female

DRUGS (6)
  1. VINCRISTINE SULFATE. [Suspect]
     Active Substance: VINCRISTINE SULFATE
     Indication: UNDIFFERENTIATED SARCOMA
     Dosage: UNK
  2. TRONOXAL [Suspect]
     Active Substance: IFOSFAMIDE
     Indication: UNDIFFERENTIATED SARCOMA
     Dosage: UNK
  3. DOXORUBICIN HCL [Suspect]
     Active Substance: DOXORUBICIN HYDROCHLORIDE
     Dosage: UNK
  4. ACTINOMYCIN D [Suspect]
     Active Substance: DACTINOMYCIN
     Indication: UNDIFFERENTIATED SARCOMA
     Dosage: UNK
  5. DOXIL [DOXYCYCLINE HYDROCHLORIDE] [Suspect]
     Active Substance: DOXYCYCLINE HYDROCHLORIDE
     Indication: UNDIFFERENTIATED SARCOMA
     Dosage: UNK (LIPOSOMAL INFUSION)
  6. GENOXAL [Suspect]
     Active Substance: CYCLOPHOSPHAMIDE
     Indication: UNDIFFERENTIATED SARCOMA
     Dosage: UNK

REACTIONS (2)
  - Anal abscess [Unknown]
  - Gastrointestinal toxicity [Unknown]
